FAERS Safety Report 14194587 (Version 1)
Quarter: 2017Q4

REPORT INFORMATION
  Report Type: Report from Study
  Country: FR (occurrence: FR)
  Receive Date: 20171116
  Receipt Date: 20171116
  Transmission Date: 20180321
  Serious: Yes (Other)
  Sender: FDA-Public Use
  Company Number: FR-ROCHE-2024887

PATIENT

DRUGS (2)
  1. LONIDAMINE [Suspect]
     Active Substance: LONIDAMINE
     Indication: GLIOBLASTOMA MULTIFORME
     Route: 048
  2. DIAZEPAM. [Suspect]
     Active Substance: DIAZEPAM
     Indication: GLIOBLASTOMA MULTIFORME
     Route: 048

REACTIONS (1)
  - Somnolence [Unknown]
